FAERS Safety Report 18025634 (Version 1)
Quarter: 2020Q3

REPORT INFORMATION
  Report Type: Spontaneous
  Country: US (occurrence: US)
  Receive Date: 20200715
  Receipt Date: 20200715
  Transmission Date: 20201103
  Serious: No
  Sender: FDA-Public Use
  Company Number: US-AMGEN-USA-20190404389

PATIENT
  Age: 59 Year
  Sex: Female

DRUGS (16)
  1. ZINC GLUCONATE [Concomitant]
     Active Substance: ZINC GLUCONATE
  2. ADVIL PM [Concomitant]
     Active Substance: DIPHENHYDRAMINE CITRATE\IBUPROFEN
  3. CALCIUM [Concomitant]
     Active Substance: CALCIUM
     Dosage: UNK
  4. FOLIC ACID. [Concomitant]
     Active Substance: FOLIC ACID
     Dosage: UNK
  5. VITAMIN C WITH CITRUS BIOFLAVONOIDS + ROSE HI [Concomitant]
     Dosage: UNK
  6. OTEZLA [Suspect]
     Active Substance: APREMILAST
     Dosage: 30 MILLIGRAM, BID
     Route: 048
  7. CIMZIA [Concomitant]
     Active Substance: CERTOLIZUMAB PEGOL
     Dosage: UNK
  8. HYDROCHLOROTH [Concomitant]
     Active Substance: HYDROCHLOROTHIAZIDE
     Dosage: UNK
  9. TRAMADOL HCL [Concomitant]
     Active Substance: TRAMADOL HYDROCHLORIDE
     Dosage: UNK
  10. QUERCETIN [Concomitant]
     Active Substance: QUERCETIN
     Dosage: UNK
  11. CENTRUM [ASCORBIC ACID;BETACAROTENE;COLECALCIFEROL;FOLIC ACID;MINERALS [Concomitant]
     Dosage: UNK
  12. OTEZLA [Suspect]
     Active Substance: APREMILAST
     Indication: PSORIASIS
     Dosage: 30 MILLIGRAM, BID
     Route: 048
     Dates: start: 20170808
  13. OTEZLA [Suspect]
     Active Substance: APREMILAST
     Dosage: 30 MILLIGRAM, BID
     Route: 048
     Dates: start: 20171025
  14. CITALOPRAM [Concomitant]
     Active Substance: CITALOPRAM HYDROBROMIDE
     Indication: PRODUCT USED FOR UNKNOWN INDICATION
     Dosage: UNK
     Route: 065
  15. LISINOPRIL. [Concomitant]
     Active Substance: LISINOPRIL
     Dosage: UNK
  16. METHOTREXATE. [Concomitant]
     Active Substance: METHOTREXATE
     Dosage: UNK

REACTIONS (2)
  - Product dose omission issue [Unknown]
  - Psoriasis [Not Recovered/Not Resolved]
